FAERS Safety Report 11409499 (Version 3)
Quarter: 2016Q1

REPORT INFORMATION
  Report Type: Report from Study
  Country: US (occurrence: US)
  Receive Date: 20150824
  Receipt Date: 20160318
  Transmission Date: 20160525
  Serious: No
  Sender: FDA-Public Use
  Company Number: PHHY2014US159463

PATIENT
  Age: 47 Year
  Sex: Female

DRUGS (2)
  1. FLUZONE [Concomitant]
     Active Substance: INFLUENZA A VIRUS A/CALIFORNIA/7/2009 X-179A (H1N1) ANTIGEN (FORMALDEHYDE INACTIVATED)\INFLUENZA A VIRUS A/VICTORIA/210/2009 X-187 (H3N2) ANTIGEN (FORMALDEHYDE INACTIVATED)\INFLUENZA B VIRUS B/BRISBANE/60/2008 ANTIGEN (FORMALDEHYDE INACTIVATED)
     Indication: PROPHYLAXIS
     Dosage: UNK
     Route: 065
     Dates: start: 20141229, end: 20141229
  2. GILENYA [Suspect]
     Active Substance: FINGOLIMOD HYDROCHLORIDE
     Indication: MULTIPLE SCLEROSIS
     Dosage: 0.5 MG, QD
     Route: 048

REACTIONS (7)
  - Lymphocyte count decreased [Unknown]
  - Alanine aminotransferase increased [Recovered/Resolved]
  - Myoclonus [Recovered/Resolved]
  - Emotional distress [Unknown]
  - JC virus test positive [Unknown]
  - Blepharospasm [Unknown]
  - Brow ptosis [Unknown]

NARRATIVE: CASE EVENT DATE: 20140923
